FAERS Safety Report 24301057 (Version 3)
Quarter: 2024Q4

REPORT INFORMATION
  Report Type: Spontaneous
  Country: SK (occurrence: SK)
  Receive Date: 20240910
  Receipt Date: 20241202
  Transmission Date: 20250115
  Serious: Yes (Other)
  Sender: ABBVIE
  Company Number: SK-JNJFOC-20240903714

PATIENT
  Age: 50 Year
  Sex: Male

DRUGS (9)
  1. DEXAMETHASONE [Suspect]
     Active Substance: DEXAMETHASONE
     Indication: Product used for unknown indication
     Dosage: GIVEN 4 CYCLES
     Route: 065
     Dates: start: 20230515, end: 20230904
  2. DEXAMETHASONE [Suspect]
     Active Substance: DEXAMETHASONE
     Dosage: 5TH AND 6TH CYCLE.
     Route: 065
     Dates: start: 20240415
  3. VELCADE [Suspect]
     Active Substance: BORTEZOMIB
     Indication: Product used for unknown indication
     Dosage: 5TH AND 6TH CYCLE.
     Route: 065
     Dates: start: 20240415
  4. VELCADE [Suspect]
     Active Substance: BORTEZOMIB
     Indication: Product used for unknown indication
     Dosage: GIVEN 4 CYCLES
     Route: 065
     Dates: start: 20230515, end: 20230904
  5. THALIDOMIDE [Suspect]
     Active Substance: THALIDOMIDE
     Indication: Product used for unknown indication
     Dosage: GIVEN 4 CYCLES
     Route: 065
     Dates: start: 20230515, end: 20230904
  6. THALIDOMIDE [Suspect]
     Active Substance: THALIDOMIDE
     Indication: Product used for unknown indication
     Dosage: 5TH AND 6TH CYCLE.
     Route: 065
     Dates: start: 20240415
  7. DARZALEX [Suspect]
     Active Substance: DARATUMUMAB
     Indication: Product used for unknown indication
     Dosage: 5TH AND 6TH CYCLE.
     Route: 065
     Dates: start: 20240415
  8. DARZALEX [Suspect]
     Active Substance: DARATUMUMAB
     Indication: Product used for unknown indication
     Route: 065
  9. DARZALEX [Suspect]
     Active Substance: DARATUMUMAB
     Indication: Product used for unknown indication
     Dosage: GIVEN 4 CYCLES
     Route: 065
     Dates: start: 20230515, end: 20230904

REACTIONS (2)
  - Neutropenia [Unknown]
  - Blood immunoglobulin G decreased [Unknown]

NARRATIVE: CASE EVENT DATE: 20230612
